FAERS Safety Report 9198736 (Version 1)
Quarter: 2013Q1

REPORT INFORMATION
  Report Type: Spontaneous
  Country: US (occurrence: None)
  Receive Date: 20130327
  Receipt Date: 20130327
  Transmission Date: 20140127
  Serious: Yes (Hospitalization)
  Sender: FDA-Public Use
  Company Number: None

PATIENT
  Age: 53 Year
  Sex: Male
  Weight: 78.93 kg

DRUGS (4)
  1. RITUXIMAB [Suspect]
     Indication: IMMUNOGLOBULIN G4 RELATED SCLEROSING DISEASE
     Route: 042
     Dates: start: 20130130, end: 20130215
  2. EPOGEN [Concomitant]
  3. TYLENOL [Concomitant]
  4. ADDERALL [Concomitant]

REACTIONS (2)
  - Fatigue [None]
  - Haemolytic anaemia [None]
